FAERS Safety Report 10191505 (Version 1)
Quarter: 2014Q2

REPORT INFORMATION
  Report Type: Spontaneous
  Country: ES (occurrence: ES)
  Receive Date: 20140523
  Receipt Date: 20140523
  Transmission Date: 20141212
  Serious: Yes (Death, Hospitalization)
  Sender: FDA-Public Use
  Company Number: PHHY2014ES062565

PATIENT
  Age: 55 Year
  Sex: Female

DRUGS (1)
  1. LEPONEX [Suspect]
     Dosage: 400 MG
     Route: 048
     Dates: start: 20131226

REACTIONS (4)
  - Odynophagia [Fatal]
  - Leukopenia [Fatal]
  - Pyrexia [Fatal]
  - Headache [Fatal]
